FAERS Safety Report 7981520-X (Version None)
Quarter: 2011Q4

REPORT INFORMATION
  Report Type: 
  Country: None (occurrence: None)
  Receive Date: 20111213
  Receipt Date: 20111201
  Transmission Date: 20120403
  Serious: Yes (Other)
  Sender: FDA-Public Use
  Company Number: TPA2011A08146

PATIENT
  Age: 75 Year
  Sex: Male
  Weight: 83.9154 kg

DRUGS (12)
  1. ZOCOR [Concomitant]
  2. ACTOS [Suspect]
     Indication: TYPE 2 DIABETES MELLITUS
     Dosage: 30 MG, 1 IN 1 D, PER ORAL
     Route: 048
     Dates: start: 20061201, end: 20100824
  3. POTASSIUM CHLORIDE [Concomitant]
  4. METFORMIN HCL [Concomitant]
  5. NIASPAN [Concomitant]
  6. NEXIUM [Concomitant]
  7. SYNTHROID [Concomitant]
  8. DIOVAN [Concomitant]
  9. TOPROL-XL [Concomitant]
  10. ASPIRIN [Concomitant]
  11. LASIX [Concomitant]
  12. CARDURA [Concomitant]

REACTIONS (3)
  - PROSTATE CANCER [None]
  - BLADDER CANCER [None]
  - THYROID CYST [None]
